FAERS Safety Report 4937554-2 (Version None)
Quarter: 2006Q1

REPORT INFORMATION
  Report Type: 
  Country: None (occurrence: None)
  Receive Date: 20060308
  Receipt Date: 20060308
  Transmission Date: 20060701
  Serious: Yes (Life-Threatening)
  Sender: FDA-Public Use
  Company Number: None

PATIENT
  Age: 22 Year
  Sex: Male
  Weight: 75 kg

DRUGS (1)
  1. THALOMID  300MG  + 50MG [Suspect]
     Indication: EWING'S SARCOMA METASTATIC
     Dosage: THALOMID 350MG  DAILY   PO
     Route: 048
     Dates: start: 20060214, end: 20060301

REACTIONS (2)
  - GRAND MAL CONVULSION [None]
  - SKIN DISCOLOURATION [None]
